FAERS Safety Report 5728263-0 (Version None)
Quarter: 2008Q2

REPORT INFORMATION
  Report Type: 
  Country: None (occurrence: None)
  Receive Date: 20080506
  Receipt Date: 20071217
  Transmission Date: 20081010
  Serious: No
  Sender: FDA-Public Use
  Company Number: US-BAYER-200716351NA

PATIENT
  Age: 53 Year
  Sex: Female
  Weight: 81 kg

DRUGS (9)
  1. NEXAVAR [Suspect]
     Indication: GALLBLADDER CANCER
     Dosage: TOTAL DAILY DOSE: 800 MG  UNIT DOSE: 200 MG
     Route: 048
     Dates: start: 20071201
  2. VITAMIN B6 [Concomitant]
  3. AMBIEN [Concomitant]
  4. PREMPRO [Concomitant]
  5. EFFEXOR [Concomitant]
  6. TOLMETIN SODIUM [Concomitant]
  7. JUICE PLUS [Concomitant]
  8. MULTI-VITAMIN [Concomitant]
  9. XANAX [Concomitant]

REACTIONS (6)
  - ERYTHEMA [None]
  - MUSCULOSKELETAL STIFFNESS [None]
  - NECK PAIN [None]
  - NEUROPATHY PERIPHERAL [None]
  - PAIN IN EXTREMITY [None]
  - RASH [None]
